FAERS Safety Report 8142367-7 (Version None)
Quarter: 2012Q1

REPORT INFORMATION
  Report Type: 
  Country: None (occurrence: None)
  Receive Date: 20120216
  Receipt Date: 20120211
  Transmission Date: 20120608
  Serious: Yes (Hospitalization)
  Sender: FDA-Public Use
  Company Number: PHHY2012MX012555

PATIENT
  Sex: Female

DRUGS (4)
  1. GLUCOSAMINE [Concomitant]
  2. CALTRATE +D [Concomitant]
  3. SNELVIT [Concomitant]
  4. ZOLEDRONOC ACID [Suspect]
     Indication: OSTEOPOROSIS
     Dosage: 5 MG, YEARLY
     Route: 042
     Dates: start: 20110207

REACTIONS (2)
  - FEMUR FRACTURE [None]
  - FALL [None]
